FAERS Safety Report 19847075 (Version 7)
Quarter: 2022Q4

REPORT INFORMATION
  Report Type: Report from Study
  Country: US (occurrence: US)
  Receive Date: 20210917
  Receipt Date: 20221013
  Transmission Date: 20230112
  Serious: Yes (Death, Hospitalization, Other)
  Sender: FDA-Public Use
  Company Number: US-BOEHRINGERINGELHEIM-2021-BI-114893

PATIENT
  Sex: Male

DRUGS (1)
  1. OFEV [Suspect]
     Active Substance: NINTEDANIB
     Indication: Idiopathic pulmonary fibrosis
     Route: 048
     Dates: start: 20210512

REACTIONS (13)
  - Cardiac failure [Fatal]
  - Respiratory failure [Fatal]
  - Pyrexia [Unknown]
  - Chest pain [Unknown]
  - Hypotension [Unknown]
  - Abdominal pain upper [Unknown]
  - Dehydration [Not Recovered/Not Resolved]
  - Dyspnoea [Unknown]
  - Haematochezia [Unknown]
  - Pneumonia [Unknown]
  - Diarrhoea [Recovered/Resolved]
  - Diarrhoea [Unknown]
  - Oxygen saturation decreased [Unknown]
